FAERS Safety Report 4535206-4 (Version None)
Quarter: 2004Q4

REPORT INFORMATION
  Report Type: 
  Country: None (occurrence: None)
  Receive Date: 20041214
  Receipt Date: 20041004
  Transmission Date: 20050328
  Serious: No
  Sender: FDA-Public Use
  Company Number: 2004238443US

PATIENT
  Sex: Female
  Weight: 90.7 kg

DRUGS (2)
  1. BEXTRA [Suspect]
     Indication: OSTEOARTHRITIS
     Dosage: 10 MG, QD, ORAL
     Route: 048
     Dates: start: 20000101, end: 20040930
  2. CORTISONE  (CORTISONE) [Concomitant]

REACTIONS (4)
  - AMINO ACID LEVEL INCREASED [None]
  - BLOOD HOMOCYSTEINE INCREASED [None]
  - DYSPEPSIA [None]
  - PAIN IN EXTREMITY [None]
